FAERS Safety Report 4924592-9 (Version None)
Quarter: 2006Q1

REPORT INFORMATION
  Report Type: 
  Country: None (occurrence: None)
  Receive Date: 20060222
  Receipt Date: 20060210
  Transmission Date: 20060701
  Serious: Yes (Other)
  Sender: FDA-Public Use
  Company Number: 2005143733

PATIENT
  Sex: Female

DRUGS (3)
  1. EPIRUBICIN HYDROCHLORIDE [Suspect]
     Indication: BREAST CANCER
     Dosage: 189 MG, INTRAVENOUS
     Route: 042
     Dates: start: 20040312, end: 20040426
  2. TAXOTERE [Suspect]
     Indication: BREAST CANCER
     Dosage: 157 MG
     Dates: start: 20040102, end: 20040426
  3. ANASTROZOLE (ANASTROZOLE) [Suspect]
     Indication: BREAST CANCER
     Dosage: 1 MG (1 IN 1 D)
     Dates: start: 20040923

REACTIONS (2)
  - PULMONARY EMBOLISM [None]
  - THROMBOCYTHAEMIA [None]
